FAERS Safety Report 6067316-7 (Version None)
Quarter: 2009Q1

REPORT INFORMATION
  Report Type: 
  Country: None (occurrence: None)
  Receive Date: 20090205
  Receipt Date: 20090126
  Transmission Date: 20090719
  Serious: Yes (Life-Threatening, Other)
  Sender: FDA-Public Use
  Company Number: JP-PFIZER INC-2008153838

PATIENT
  Sex: Male
  Weight: 47.9 kg

DRUGS (7)
  1. EPLERENONE [Suspect]
     Indication: HYPERTENSION
     Dosage: 50 MG, 1X/DAY
     Dates: start: 20080707, end: 20081201
  2. OLMETEC [Concomitant]
     Dosage: 20 MG, 1X/DAY
     Route: 048
  3. CALBLOCK [Concomitant]
     Dosage: 16 MG, 1X/DAY
     Route: 048
  4. THYRADIN [Concomitant]
     Dosage: 25 MG, 1X/DAY
     Route: 048
  5. TAKEPRON [Concomitant]
     Dosage: 30 MG, 1X/DAY
     Route: 048
  6. URSO 250 [Concomitant]
     Dosage: 50 MG, 3X/DAY
     Route: 048
  7. BENECID [Concomitant]
     Dosage: 500 MG, 1X/DAY
     Route: 048

REACTIONS (3)
  - CONDITION AGGRAVATED [None]
  - HYPERKALAEMIA [None]
  - RENAL FAILURE CHRONIC [None]
